FAERS Safety Report 9792502 (Version 3)
Quarter: 2014Q1

REPORT INFORMATION
  Report Type: Report from Study
  Country: TR (occurrence: TR)
  Receive Date: 20140102
  Receipt Date: 20140113
  Transmission Date: 20141002
  Serious: Yes (Death)
  Sender: FDA-Public Use
  Company Number: PHHY2013TR152464

PATIENT
  Age: 60 Year
  Sex: Male

DRUGS (1)
  1. SANDOSTATIN LAR [Suspect]
     Indication: ACROMEGALY
     Dosage: 20 MG, ONCE EVERY 28 DAYS
     Dates: start: 20080101, end: 20131127

REACTIONS (1)
  - Malignant neoplasm of unknown primary site [Fatal]
